FAERS Safety Report 9674699 (Version 1)
Quarter: 2013Q4

REPORT INFORMATION
  Report Type: Spontaneous
  Country: US (occurrence: None)
  Receive Date: 20131106
  Receipt Date: 20131106
  Transmission Date: 20140711
  Serious: No
  Sender: FDA-Public Use
  Company Number: None

PATIENT
  Age: 32 Year
  Sex: Female
  Weight: 60.33 kg

DRUGS (1)
  1. BUPROPION EXTENDED RELEASE (BUPROPION HYDROCHLORIDE) (BUPROPION HYDROCHLORIDE) [Suspect]
     Indication: FIBROMYALGIA
     Dosage: ONE PILL; ONCE DAILY; TAKEN BY MOUTH
     Route: 048
     Dates: start: 20131025, end: 20131105

REACTIONS (6)
  - Tremor [None]
  - Feeling jittery [None]
  - Feeling abnormal [None]
  - Feeling abnormal [None]
  - Dizziness [None]
  - Product substitution issue [None]
